FAERS Safety Report 5753022-2 (Version None)
Quarter: 2008Q2

REPORT INFORMATION
  Report Type: 
  Country: None (occurrence: None)
  Receive Date: 20080527
  Receipt Date: 20080507
  Transmission Date: 20081010
  Serious: Yes (Hospitalization)
  Sender: FDA-Public Use
  Company Number: 8031767

PATIENT
  Age: 70 Year
  Sex: Female
  Weight: 90 kg

DRUGS (2)
  1. KEPPRA [Suspect]
     Indication: MYOCLONUS
     Dosage: 1500 MG 2/D
     Dates: start: 20080219
  2. CLONAZEPAM [Concomitant]

REACTIONS (1)
  - DRUG INEFFECTIVE [None]
